FAERS Safety Report 9058744 (Version 3)
Quarter: 2013Q2

REPORT INFORMATION
  Report Type: Spontaneous
  Country: US (occurrence: US)
  Receive Date: 20130204
  Receipt Date: 20130426
  Transmission Date: 20140414
  Serious: No
  Sender: FDA-Public Use
  Company Number: US-ASTRAZENECA-2013SE06639

PATIENT
  Age: 65 Year
  Sex: Male

DRUGS (4)
  1. NEXIUM [Suspect]
     Indication: GASTROOESOPHAGEAL REFLUX DISEASE
     Route: 048
  2. PRILOSEC [Suspect]
     Route: 048
  3. FOLIC ACID [Concomitant]
  4. ZANTAC [Concomitant]

REACTIONS (5)
  - Dysphagia [Unknown]
  - Lung disorder [Unknown]
  - Adverse event [Unknown]
  - Feeling abnormal [Unknown]
  - Burning sensation [Unknown]
